FAERS Safety Report 23580682 (Version 2)
Quarter: 2024Q1

REPORT INFORMATION
  Report Type: Report from Study
  Country: FR (occurrence: FR)
  Receive Date: 20240229
  Receipt Date: 20240315
  Transmission Date: 20240410
  Serious: Yes (Hospitalization)
  Sender: FDA-Public Use
  Company Number: FR-SERVIER-S24001989

PATIENT

DRUGS (8)
  1. PEGASPARGASE [Suspect]
     Active Substance: PEGASPARGASE
     Indication: Acute lymphocytic leukaemia
     Dosage: 1900 IU, D4
     Route: 042
     Dates: start: 20200904, end: 20200904
  2. PEGASPARGASE [Suspect]
     Active Substance: PEGASPARGASE
     Dosage: 1900 IU, D4
     Route: 042
     Dates: start: 20201015
  3. VINCRISTINE [Suspect]
     Active Substance: VINCRISTINE
     Indication: Acute lymphocytic leukaemia
     Dosage: 1.1 MG, D1, D8, D15, D22
     Route: 042
     Dates: start: 20200901, end: 20200922
  4. VINCRISTINE [Suspect]
     Active Substance: VINCRISTINE
     Dosage: 1.1 MG, D1, D8, D15, D22
     Route: 042
     Dates: start: 20201012
  5. DOXORUBICIN [Suspect]
     Active Substance: DOXORUBICIN
     Indication: Acute lymphocytic leukaemia
     Dosage: 22.5 MG, D1, D8, D15, D22
     Route: 042
     Dates: start: 20200901, end: 20200922
  6. DOXORUBICIN [Suspect]
     Active Substance: DOXORUBICIN
     Dosage: 22.5 MG, D1, D8, D15, D22
     Route: 042
     Dates: start: 20201012
  7. METHOTREXATE [Suspect]
     Active Substance: METHOTREXATE
     Indication: Acute lymphocytic leukaemia
     Dosage: 12 MG, D4
     Route: 037
     Dates: start: 20200904, end: 20200929
  8. METHOTREXATE [Suspect]
     Active Substance: METHOTREXATE
     Dosage: 12 MG, D4
     Route: 037
     Dates: start: 20201015

REACTIONS (3)
  - Deep vein thrombosis [Recovered/Resolved]
  - Mucosal inflammation [Recovered/Resolved]
  - Hypoxia [Recovered/Resolved]

NARRATIVE: CASE EVENT DATE: 20200929
